FAERS Safety Report 8575805 (Version 2)
Quarter: 2014Q1

REPORT INFORMATION
  Report Type: Spontaneous
  Country: US (occurrence: None)
  Receive Date: 20120323
  Receipt Date: 20130305
  Transmission Date: 20141002
  Serious: Yes (Death)
  Sender: FDA-Public Use
  Company Number: 163-21880-11061948

PATIENT
  Age: 51 Year
  Sex: Male

DRUGS (3)
  1. REVLIMID [Suspect]
     Indication: PLASMA CELL MYELOMA
     Dosage: 25 MG, DAILY FOR 14 DAYS ON, 7 OFF, PO
     Route: 048
     Dates: start: 20110614
  2. VELCADE [Concomitant]
  3. DECADRON (DEXAMETHASONE) [Concomitant]

REACTIONS (7)
  - Neuropathy peripheral [None]
  - Pain in extremity [None]
  - Fatigue [None]
  - Asthenia [None]
  - Vision blurred [None]
  - Abdominal distension [None]
  - Back pain [None]
